FAERS Safety Report 23976057 (Version 2)
Quarter: 2024Q4

REPORT INFORMATION
  Report Type: Spontaneous
  Country: FR (occurrence: FR)
  Receive Date: 20240614
  Receipt Date: 20241008
  Transmission Date: 20250114
  Serious: Yes (Hospitalization)
  Sender: NOVARTIS
  Company Number: None

PATIENT
  Age: 74 Year
  Sex: Female

DRUGS (2)
  1. LETROZOLE [Suspect]
     Active Substance: LETROZOLE
     Indication: Breast cancer
     Dosage: 2.5 MG, QD
     Route: 048
     Dates: start: 20240228
  2. LEVOTHYROXINE [Concomitant]
     Active Substance: LEVOTHYROXINE
     Indication: Hypothyroidism
     Dosage: 100 UG, QD (COMPRIM? S?CABLE)
     Route: 048

REACTIONS (4)
  - Peripheral arterial occlusive disease [Recovering/Resolving]
  - Aortic thrombosis [Recovering/Resolving]
  - Peripheral artery thrombosis [Recovering/Resolving]
  - Colitis [Recovered/Resolved]

NARRATIVE: CASE EVENT DATE: 20240314
